FAERS Safety Report 6958718-2 (Version None)
Quarter: 2010Q3

REPORT INFORMATION
  Report Type: 
  Country: None (occurrence: None)
  Receive Date: 20100831
  Receipt Date: 20100818
  Transmission Date: 20110219
  Serious: Yes (Other)
  Sender: FDA-Public Use
  Company Number: PHHY2010BR55126

PATIENT
  Sex: Female

DRUGS (1)
  1. RASILEZ [Suspect]
     Dosage: 300 MG
     Route: 048

REACTIONS (1)
  - HYPERTENSION [None]
